FAERS Safety Report 5581608-7 (Version None)
Quarter: 2008Q1

REPORT INFORMATION
  Report Type: 
  Country: None (occurrence: None)
  Receive Date: 20080104
  Receipt Date: 20071227
  Transmission Date: 20080703
  Serious: Yes (Hospitalization)
  Sender: FDA-Public Use
  Company Number: US-BRISTOL-MYERS SQUIBB COMPANY-14005284

PATIENT
  Age: 56 Year
  Sex: Male

DRUGS (5)
  1. ERBITUX [Suspect]
     Indication: NEOPLASM MALIGNANT
     Dosage: INITIAL DOSE - 800MG
     Route: 042
     Dates: start: 20061113, end: 20061113
  2. XANAX [Concomitant]
  3. VICODIN [Concomitant]
  4. AMBIEN [Concomitant]
  5. FENTANYL [Concomitant]

REACTIONS (3)
  - COMA [None]
  - CONFUSIONAL STATE [None]
  - RESPIRATORY DISTRESS [None]
